FAERS Safety Report 7805498-4 (Version None)
Quarter: 2011Q4

REPORT INFORMATION
  Report Type: 
  Country: None (occurrence: None)
  Receive Date: 20111010
  Receipt Date: 20111007
  Transmission Date: 20120403
  Serious: Yes (Death, Hospitalization)
  Sender: FDA-Public Use
  Company Number: PHHY2011CA75110

PATIENT
  Sex: Female

DRUGS (3)
  1. ZOLEDRONOC ACID [Suspect]
     Indication: OSTEOPOROSIS
     Route: 042
     Dates: start: 20081208
  2. ZOLEDRONOC ACID [Suspect]
     Route: 042
     Dates: start: 20091127
  3. ZOLEDRONOC ACID [Suspect]
     Route: 042
     Dates: start: 20101108

REACTIONS (3)
  - PYELONEPHRITIS [None]
  - DEATH [None]
  - RENAL FAILURE ACUTE [None]
